FAERS Safety Report 5324237-2 (Version None)
Quarter: 2007Q2

REPORT INFORMATION
  Report Type: 
  Country: None (occurrence: None)
  Receive Date: 20070507
  Receipt Date: 20070424
  Transmission Date: 20071010
  Serious: Yes (Hospitalization, Other)
  Sender: FDA-Public Use
  Company Number: 230007M06CHE

PATIENT
  Sex: Female

DRUGS (4)
  1. REBIF [Suspect]
     Indication: MULTIPLE SCLEROSIS
     Dosage: 44, SUBCUTANEOUS
     Route: 058
     Dates: start: 20060901, end: 20070101
  2. REBIF [Suspect]
     Indication: MULTIPLE SCLEROSIS
     Dosage: 44, SUBCUTANEOUS
     Route: 058
     Dates: start: 20070401
  3. PARACETAMOL [Concomitant]
  4. TOLTERODINE TARTRATE [Concomitant]

REACTIONS (5)
  - ABDOMINAL PAIN [None]
  - COLON CANCER [None]
  - FLATULENCE [None]
  - IMPAIRED WORK ABILITY [None]
  - URINARY RETENTION [None]
